FAERS Safety Report 10128567 (Version 2)
Quarter: 2014Q2

REPORT INFORMATION
  Report Type: Spontaneous
  Country: GB (occurrence: GB)
  Receive Date: 20140428
  Receipt Date: 20140523
  Transmission Date: 20141212
  Serious: Yes (Life-Threatening, Hospitalization, Disabling, Other)
  Sender: FDA-Public Use
  Company Number: GB-RANBAXY-2014RR-80664

PATIENT
  Age: 13 Year
  Sex: Male
  Weight: 110 kg

DRUGS (11)
  1. CODEINE [Suspect]
     Indication: PRODUCT USED FOR UNKNOWN INDICATION
     Dosage: UNK
     Route: 065
     Dates: start: 20140403
  2. CERELLE [Concomitant]
     Indication: PRODUCT USED FOR UNKNOWN INDICATION
     Dosage: UNK
     Route: 065
     Dates: start: 20131205, end: 20140227
  3. CLOPIDOGREL [Concomitant]
     Indication: PRODUCT USED FOR UNKNOWN INDICATION
     Dosage: UNK
     Route: 065
     Dates: start: 20140109, end: 20140208
  4. CLOPIDOGREL [Concomitant]
     Dosage: UNK
     Route: 065
     Dates: start: 20140107, end: 20140206
  5. FENBID [Concomitant]
     Indication: PRODUCT USED FOR UNKNOWN INDICATION
     Dosage: UNK
     Route: 065
     Dates: start: 20140127, end: 20140206
  6. IBUPROFEN [Concomitant]
     Indication: PRODUCT USED FOR UNKNOWN INDICATION
     Dosage: UNK
     Route: 065
     Dates: start: 20131231, end: 20140128
  7. PLATINA [Concomitant]
     Indication: PRODUCT USED FOR UNKNOWN INDICATION
     Dosage: UNK
     Route: 065
     Dates: start: 20140129, end: 20140219
  8. PLATINA [Concomitant]
     Dosage: UNK
     Route: 065
     Dates: start: 20140107, end: 20140128
  9. PLATINA [Concomitant]
     Dosage: UNK
     Route: 065
     Dates: start: 20140110, end: 20140131
  10. PLATINA [Concomitant]
     Dosage: UNK
     Route: 065
     Dates: start: 20140109, end: 20140130
  11. TRAMADOL [Concomitant]
     Indication: PRODUCT USED FOR UNKNOWN INDICATION
     Dosage: UNK
     Route: 065
     Dates: start: 20140403

REACTIONS (1)
  - Hypersensitivity [Not Recovered/Not Resolved]
